FAERS Safety Report 5455463-X (Version None)
Quarter: 2007Q3

REPORT INFORMATION
  Report Type: 
  Country: None (occurrence: None)
  Receive Date: 20070918
  Receipt Date: 20070531
  Transmission Date: 20080115
  Serious: Yes (Other)
  Sender: FDA-Public Use
  Company Number: US-ASTRAZENECA-2006UW21271

PATIENT
  Age: 54 Year
  Sex: Female
  Weight: 62.7 kg

DRUGS (6)
  1. SEROQUEL [Suspect]
     Indication: DEPRESSION
     Route: 048
  2. HALDOL [Concomitant]
  3. NAVANE [Concomitant]
  4. RISPERDAL [Concomitant]
  5. TRILAFON [Concomitant]
  6. ZYPREXA [Concomitant]

REACTIONS (2)
  - DIABETES MELLITUS [None]
  - DIABETIC COMA [None]
